FAERS Safety Report 6145015 (Version 26)
Quarter: 2013Q3

REPORT INFORMATION
  Report Type: Spontaneous
  Country: US (occurrence: US)
  Receive Date: 20061011
  Receipt Date: 20130812
  Transmission Date: 20140515
  Serious: Yes (Death, Hospitalization, Other)
  Sender: FDA-Public Use
  Company Number: PHEH2006US12309

PATIENT
  Age: 65 Year
  Sex: Female
  Weight: 74.83 kg

DRUGS (23)
  1. AREDIA [Suspect]
     Indication: BONE LOSS
     Dosage: 90 MG, QMO
  2. ZOMETA [Suspect]
     Route: 042
  3. NORVASC [Concomitant]
     Dosage: 2.5 MG, UNK
  4. MAXZIDE [Concomitant]
  5. DOCUSATE SODIUM [Concomitant]
     Dosage: 240 MG, PRN
     Route: 048
  6. ASPIRIN N [Concomitant]
     Dosage: 81 MG, UNK
     Route: 048
  7. VELCADE [Concomitant]
  8. RENAGEL [Concomitant]
     Dosage: 800 MG, TID
     Route: 048
  9. CALCITROL [Concomitant]
     Dosage: 0.25 MG, UNK
  10. LISINOPRIL [Concomitant]
     Dosage: 40 MG, UNK
  11. PENICILLIN NOS [Concomitant]
     Dosage: 500 MG, UNK
  12. VITAMIN B6 [Concomitant]
     Dosage: 100 MG,
     Route: 048
  13. PEPCID [Concomitant]
     Dosage: 20 MG, UNK
  14. FUROSEMIDE [Concomitant]
     Dosage: 20 MG, UNK
  15. ARICEPT [Concomitant]
  16. PROCRIT                            /00909301/ [Concomitant]
  17. PREDNISONE [Concomitant]
  18. DEXAMETHASONE [Concomitant]
  19. TRIAMTERENE [Concomitant]
  20. HYDROCODONE [Concomitant]
  21. NIFEDICAL [Concomitant]
  22. METOPROLOL [Concomitant]
  23. CAPTOPRIL [Concomitant]

REACTIONS (108)
  - Hyperkalaemia [Unknown]
  - Thrombocytopenia [Unknown]
  - Cardiac murmur [Unknown]
  - Cardiomegaly [Unknown]
  - Mental status changes [Unknown]
  - Intracranial venous sinus thrombosis [Unknown]
  - Spinal cord compression [Unknown]
  - Back pain [Unknown]
  - Coronary artery disease [Unknown]
  - Arteriosclerosis [Unknown]
  - Pericardial effusion [Unknown]
  - Intervertebral disc degeneration [Unknown]
  - Metabolic acidosis [Unknown]
  - Foot fracture [Unknown]
  - Breast oedema [Unknown]
  - Local swelling [Unknown]
  - Pancytopenia [Unknown]
  - Bronchitis [Unknown]
  - Hypoxia [Unknown]
  - Blood lactic acid increased [Unknown]
  - Neutropenia [Unknown]
  - Fluid overload [Unknown]
  - Decreased appetite [Unknown]
  - Dyspnoea [Unknown]
  - Muscular weakness [Unknown]
  - Hypoglycaemia [Unknown]
  - Local swelling [Unknown]
  - Pulmonary oedema [Unknown]
  - Pulmonary hypertension [Unknown]
  - Cor pulmonale [Unknown]
  - Respiratory distress [Unknown]
  - Encephalopathy [Unknown]
  - Sepsis [Unknown]
  - Arrhythmia [Unknown]
  - Decubitus ulcer [Unknown]
  - Blindness [Unknown]
  - Deafness [Unknown]
  - Depression [Unknown]
  - Osteolysis [Unknown]
  - Pulmonary mass [Unknown]
  - Gait disturbance [Unknown]
  - Cerebrovascular accident [Unknown]
  - Jugular vein thrombosis [Unknown]
  - Mitral valve calcification [Unknown]
  - Atelectasis [Unknown]
  - Atrophy [Unknown]
  - Aortic calcification [Unknown]
  - Acute respiratory failure [Unknown]
  - Spinal column stenosis [Unknown]
  - Wheezing [Unknown]
  - Cough [Unknown]
  - Constipation [Unknown]
  - Dizziness [Unknown]
  - Diarrhoea [Unknown]
  - Insomnia [Unknown]
  - Fall [Unknown]
  - Gastrooesophageal reflux disease [Unknown]
  - Hypocalcaemia [Unknown]
  - Pain in extremity [Unknown]
  - Pleural effusion [Unknown]
  - Arthralgia [Unknown]
  - Urinary incontinence [Unknown]
  - Spinal osteoarthritis [Unknown]
  - Osteoarthritis [Unknown]
  - Rib fracture [Unknown]
  - Asthma [Unknown]
  - Splenic granuloma [Unknown]
  - Pneumonia [Unknown]
  - Chronic obstructive pulmonary disease [Unknown]
  - Cardiac failure congestive [Unknown]
  - Bone cancer [Unknown]
  - Lung infiltration [Unknown]
  - Vertebral foraminal stenosis [Unknown]
  - Kyphosis [Unknown]
  - Death [Fatal]
  - Syncope [Unknown]
  - Blood glucose decreased [Unknown]
  - Hypotension [Unknown]
  - Nephrosclerosis [Not Recovered/Not Resolved]
  - Nephropathy toxic [Unknown]
  - Proteinuria [Unknown]
  - Renal failure chronic [Not Recovered/Not Resolved]
  - Blood creatinine increased [Not Recovered/Not Resolved]
  - Azotaemia [Unknown]
  - Anaemia of chronic disease [Not Recovered/Not Resolved]
  - Osteonecrosis of jaw [Unknown]
  - Oedema mouth [Recovering/Resolving]
  - Injury [Unknown]
  - Pain [Unknown]
  - Anxiety [Unknown]
  - Physical disability [Unknown]
  - Osteomyelitis [Unknown]
  - Wound [Unknown]
  - Bone disorder [Unknown]
  - Tooth disorder [Unknown]
  - Swelling [Recovering/Resolving]
  - Poor personal hygiene [Unknown]
  - Dental caries [Unknown]
  - Cataract [Unknown]
  - Neuropathy peripheral [Unknown]
  - Dementia [Unknown]
  - Hallucination [Unknown]
  - Hyperparathyroidism [Unknown]
  - Compression fracture [Unknown]
  - Arteriovenous fistula site complication [Unknown]
  - Chondrocalcinosis pyrophosphate [Unknown]
  - Joint effusion [Unknown]
  - Plasma cell myeloma [Unknown]
